FAERS Safety Report 25322738 (Version 1)
Quarter: 2025Q2

REPORT INFORMATION
  Report Type: Spontaneous
  Country: GB (occurrence: GB)
  Receive Date: 20250516
  Receipt Date: 20250516
  Transmission Date: 20250717
  Serious: Yes (Death)
  Sender: TEVA
  Company Number: GB-MHRA-MIDB-84334768-0d69-40fb-a656-bac0e3e536f6

PATIENT
  Age: 80 Year
  Sex: Female

DRUGS (9)
  1. CIPROFLOXACIN [Suspect]
     Active Substance: CIPROFLOXACIN
     Indication: Product used for unknown indication
     Dosage: ROA: ORAL
     Route: 065
     Dates: start: 20150219, end: 20150222
  2. LINEZOLID [Suspect]
     Active Substance: LINEZOLID
     Indication: Product used for unknown indication
     Dosage: ROA: ORAL
     Route: 065
     Dates: start: 20141230, end: 20150107
  3. MEROPENEM [Suspect]
     Active Substance: MEROPENEM
     Indication: Product used for unknown indication
     Route: 065
     Dates: start: 20141124, end: 20141223
  4. MEROPENEM [Suspect]
     Active Substance: MEROPENEM
     Indication: Product used for unknown indication
     Route: 065
     Dates: start: 20141228, end: 20150107
  5. METRONIDAZOLE [Suspect]
     Active Substance: METRONIDAZOLE
     Indication: Product used for unknown indication
     Route: 065
     Dates: start: 20141126, end: 20141205
  6. OMEPRAZOLE [Suspect]
     Active Substance: OMEPRAZOLE
     Indication: Product used for unknown indication
     Dosage: ROA: NASAL
     Route: 065
     Dates: start: 20150112, end: 20150208
  7. OMEPRAZOLE [Suspect]
     Active Substance: OMEPRAZOLE
     Indication: Product used for unknown indication
     Dosage: DOSAGE TEXT: POWDER AND SOLVENT FOR SOLUTION FOR INJECTION, ROA: INTRAVENOUS (NOT OTHERWISE SPECI...
     Route: 065
     Dates: start: 20141025, end: 20150112
  8. PIPERACILLIN SODIUM\TAZOBACTAM SODIUM [Suspect]
     Active Substance: PIPERACILLIN SODIUM\TAZOBACTAM SODIUM
     Indication: Product used for unknown indication
     Route: 065
     Dates: start: 20150123, end: 20150127
  9. VANCOMYCIN [Suspect]
     Active Substance: VANCOMYCIN
     Indication: Product used for unknown indication
     Dosage: ROA: ORAL
     Route: 065
     Dates: start: 20141124, end: 20141128

REACTIONS (1)
  - Clostridium difficile infection [Fatal]

NARRATIVE: CASE EVENT DATE: 20150208
